FAERS Safety Report 6511592-0 (Version None)
Quarter: 2009Q4

REPORT INFORMATION
  Report Type: 
  Country: None (occurrence: None)
  Receive Date: 20091222
  Receipt Date: 20090615
  Transmission Date: 20100525
  Serious: Yes (Other)
  Sender: FDA-Public Use
  Company Number: US-ASTRAZENECA-2009UW10457

PATIENT
  Sex: Female
  Weight: 65.8 kg

DRUGS (8)
  1. CRESTOR [Suspect]
     Route: 048
  2. CRESTOR [Suspect]
     Route: 048
  3. COREG [Concomitant]
  4. LISINOPRIL [Concomitant]
     Route: 048
  5. PLAVIX [Concomitant]
  6. PREDNISONE [Concomitant]
  7. ASPIRIN [Concomitant]
  8. BENADRYL [Concomitant]

REACTIONS (1)
  - URTICARIA [None]
